FAERS Safety Report 9667091 (Version 1)
Quarter: 2013Q4

REPORT INFORMATION
  Report Type: Spontaneous
  Country: US (occurrence: US)
  Receive Date: 20131104
  Receipt Date: 20131104
  Transmission Date: 20140711
  Serious: No
  Sender: FDA-Public Use
  Company Number: US-BIOGENIDEC-2013BI089803

PATIENT
  Age: 66 Year
  Sex: Female

DRUGS (6)
  1. TECFIDERA [Suspect]
     Indication: MULTIPLE SCLEROSIS
     Route: 048
     Dates: start: 20130730
  2. METRONIDAZOLE [Concomitant]
  3. ZOLPIDEM TARTRATE [Concomitant]
  4. ALEVE [Concomitant]
  5. ADVIL [Concomitant]
  6. OMEPRAZOLE [Concomitant]

REACTIONS (4)
  - Giardiasis [Unknown]
  - Weight decreased [Unknown]
  - Diarrhoea [Unknown]
  - Nausea [Unknown]
